FAERS Safety Report 13853685 (Version 1)
Quarter: 2017Q3

REPORT INFORMATION
  Report Type: Spontaneous
  Country: US (occurrence: US)
  Receive Date: 20170809
  Receipt Date: 20170809
  Transmission Date: 20171127
  Serious: Yes (Hospitalization)
  Sender: FDA-Public Use
  Company Number: US-SA-2017SA145381

PATIENT
  Age: 64 Year
  Sex: Male

DRUGS (6)
  1. METOPROLOL TARTRATE. [Suspect]
     Active Substance: METOPROLOL TARTRATE
     Dosage: LAST TAKEN: 01-MAY-2017 08:12 100 MG
     Route: 048
     Dates: end: 20170501
  2. PLAVIX [Suspect]
     Active Substance: CLOPIDOGREL BISULFATE
     Route: 048
  3. ASPIRIN. [Suspect]
     Active Substance: ASPIRIN
     Route: 065
  4. LIPITOR [Suspect]
     Active Substance: ATORVASTATIN CALCIUM
     Dosage: 80 MG ORAL HOUR OF SLEEP; LAST TAKEN: 08-MAY-2017 20:19 80 MG
     Route: 048
     Dates: end: 20170508
  5. ZETIA [Suspect]
     Active Substance: EZETIMIBE
     Route: 065
  6. ELIQUIS [Suspect]
     Active Substance: APIXABAN
     Dosage: 2.5 MG ORAL 0600, 1800; LAST TAKEN: 09-MAY-2017 06:00 2.5 MG
     Route: 048
     Dates: end: 20170509

REACTIONS (2)
  - Atrial fibrillation [Unknown]
  - Chest pain [Unknown]
